FAERS Safety Report 12377202 (Version 1)
Quarter: 2016Q2

REPORT INFORMATION
  Report Type: Spontaneous
  Country: US (occurrence: US)
  Receive Date: 20160517
  Receipt Date: 20160517
  Transmission Date: 20160815
  Serious: No
  Sender: FDA-Public Use
  Company Number: US-MALLINCKRODT-T201504893

PATIENT
  Age: 33 Year
  Sex: Female

DRUGS (19)
  1. MONTELUKAST [Concomitant]
     Active Substance: MONTELUKAST SODIUM
  2. CYCLOBENZAPRINE [Concomitant]
     Active Substance: CYCLOBENZAPRINE
  3. NIASPAN [Concomitant]
     Active Substance: NIACIN
  4. LANSOPRAZOLE. [Concomitant]
     Active Substance: LANSOPRAZOLE
  5. HYDROCODONE [Concomitant]
     Active Substance: HYDROCODONE
  6. COPAXONE [Concomitant]
     Active Substance: GLATIRAMER ACETATE
  7. METFORMIN [Concomitant]
     Active Substance: METFORMIN HYDROCHLORIDE
  8. FAMCICLOVIR. [Concomitant]
     Active Substance: FAMCICLOVIR
  9. GABAPENTIN. [Concomitant]
     Active Substance: GABAPENTIN
  10. TRANEX [Concomitant]
     Active Substance: TRANEXAMIC ACID
  11. AMPHETAMINE SALTS [Concomitant]
     Active Substance: AMPHETAMINE ASPARTATE\AMPHETAMINE SULFATE\DEXTROAMPHETAMINE SACCHARATE\DEXTROAMPHETAMINE SULFATE
  12. ALPRAZOLAM. [Concomitant]
     Active Substance: ALPRAZOLAM
  13. DICLOFENAC [Concomitant]
     Active Substance: DICLOFENAC
  14. CLOMIPHENE [Concomitant]
     Active Substance: CLOMIPHENE
  15. H.P. ACTHAR [Suspect]
     Active Substance: CORTICOTROPIN
     Indication: MULTIPLE SCLEROSIS
     Dosage: 80 UNITS QD
     Route: 030
     Dates: start: 20151009
  16. CELEBREX [Concomitant]
     Active Substance: CELECOXIB
  17. VITAMIN D [Concomitant]
     Active Substance: CHOLECALCIFEROL
  18. AVANDIA [Concomitant]
     Active Substance: ROSIGLITAZONE MALEATE
  19. FEMCON FE [Concomitant]
     Active Substance: ETHINYL ESTRADIOL\NORETHINDRONE ACETATE

REACTIONS (2)
  - Pain [Unknown]
  - Arthralgia [Unknown]

NARRATIVE: CASE EVENT DATE: 20151011
